FAERS Safety Report 5719546-9 (Version None)
Quarter: 2008Q2

REPORT INFORMATION
  Report Type: 
  Country: None (occurrence: None)
  Receive Date: 20080423
  Receipt Date: 20070302
  Transmission Date: 20081010
  Serious: Yes (Life-Threatening, Hospitalization, Other)
  Sender: FDA-Public Use
  Company Number: 236350

PATIENT
  Age: 76 Year
  Sex: Female

DRUGS (8)
  1. AVASTIN [Suspect]
     Indication: COLON CANCER METASTATIC
     Dosage: 5 MG/KG, Q2W
     Dates: start: 20060720
  2. XELODA [Concomitant]
  3. OXALIPLATIN [Concomitant]
  4. PERCOCET [Concomitant]
  5. DIOVAN [Concomitant]
  6. INDERAL LA [Concomitant]
  7. MAXZIDE (HYDROCHLOROTHIAIZDE, TRIAMETRENE) [Concomitant]
  8. HYDROCHLOROTHIAZIDE [Concomitant]

REACTIONS (1)
  - REVERSIBLE POSTERIOR LEUKOENCEPHALOPATHY SYNDROME [None]
